FAERS Safety Report 23228969 (Version 1)
Quarter: 2023Q4

REPORT INFORMATION
  Report Type: Report from Study
  Country: US (occurrence: US)
  Receive Date: 20231126
  Receipt Date: 20231126
  Transmission Date: 20240109
  Serious: Yes (Hospitalization, Other)
  Sender: FDA-Public Use
  Company Number: US-ABBVIE-5284484

PATIENT
  Sex: Male
  Weight: 68 kg

DRUGS (18)
  1. CARBIDOPA\LEVODOPA [Suspect]
     Active Substance: CARBIDOPA\LEVODOPA
     Indication: Parkinson^s disease
     Route: 050
     Dates: start: 202306
  2. CARBIDOPA\LEVODOPA [Suspect]
     Active Substance: CARBIDOPA\LEVODOPA
     Dosage: LAST ADMIN DATE: 2023
     Route: 050
     Dates: start: 20230206
  3. KEPPRA [Concomitant]
     Active Substance: LEVETIRACETAM
     Indication: Product used for unknown indication
  4. KEPPRA [Concomitant]
     Active Substance: LEVETIRACETAM
     Indication: Product used for unknown indication
  5. ATORVASTATIN [Concomitant]
     Active Substance: ATORVASTATIN
     Indication: Product used for unknown indication
     Dosage: STRENGTH: 40 MILLIGRAM
     Route: 048
  6. NAMENDA [Concomitant]
     Active Substance: MEMANTINE HYDROCHLORIDE
     Indication: Product used for unknown indication
     Dosage: STRENGTH: 5 MILLIGRAM
     Route: 048
     Dates: start: 20211205
  7. FINASTERIDE [Concomitant]
     Active Substance: FINASTERIDE
     Indication: Product used for unknown indication
     Dosage: STRENGTH: 1 MILLIGRAM
     Route: 048
  8. ELIQUIS [Concomitant]
     Active Substance: APIXABAN
     Indication: Product used for unknown indication
     Dosage: STRENGTH: 5 MILLIGRAM
     Route: 048
  9. RIVASTIGMINE [Concomitant]
     Active Substance: RIVASTIGMINE
     Indication: Product used for unknown indication
     Dosage: STRENGTH: 4.5 MILLIGRAM
     Route: 048
     Dates: start: 20191209
  10. RIVASTIGMINE [Concomitant]
     Active Substance: RIVASTIGMINE
     Indication: Product used for unknown indication
  11. NAMENDA [Concomitant]
     Active Substance: MEMANTINE HYDROCHLORIDE
     Indication: Product used for unknown indication
  12. XEOMIN [Concomitant]
     Active Substance: INCOBOTULINUMTOXINA
     Indication: Product used for unknown indication
     Dosage: 15 UNITS INTO BILATERAL PAROTID AND 10 UNITS INTO BILATERAL SUBMANDIBULAR
  13. GUANFACINE [Concomitant]
     Active Substance: GUANFACINE
     Indication: Product used for unknown indication
  14. VITAMIN B COMPLEX [Concomitant]
     Active Substance: CYANOCOBALAMIN\DEXPANTHENOL\NIACINAMIDE\PYRIDOXINE HYDROCHLORIDE\RIBOFLAVIN 5^-PHOSPHATE SODIUM\THIA
     Indication: Product used for unknown indication
     Route: 048
  15. PROBIOTICS NOS [Concomitant]
     Active Substance: PROBIOTICS NOS
     Indication: Product used for unknown indication
  16. FAMOTIDINE [Concomitant]
     Active Substance: FAMOTIDINE
     Indication: Product used for unknown indication
     Dosage: 1 TABLET AT BEDTIME AS NEEDED ORALLY ONCE A DAY
     Route: 048
  17. VITAMIN B1 [Concomitant]
     Active Substance: THIAMINE HYDROCHLORIDE
     Indication: Product used for unknown indication
  18. CARBIDOPA\LEVODOPA [Concomitant]
     Active Substance: CARBIDOPA\LEVODOPA
     Indication: Product used for unknown indication
     Dosage: 25-100 MG
     Route: 048
     Dates: start: 20201230

REACTIONS (24)
  - Unresponsive to stimuli [Unknown]
  - Blood lactic acid increased [Unknown]
  - Diarrhoea [Unknown]
  - Fatigue [Unknown]
  - Cellulitis [Unknown]
  - Bradycardia [Unknown]
  - Localised infection [Unknown]
  - Salivary hypersecretion [Unknown]
  - Choking [Unknown]
  - Muscle rigidity [Unknown]
  - Apnoeic attack [Unknown]
  - Dyskinesia [Unknown]
  - Sleep disorder [Unknown]
  - Urinary tract infection [Unknown]
  - Dementia [Unknown]
  - Hallucination [Unknown]
  - Constipation [Unknown]
  - Transient ischaemic attack [Unknown]
  - Back pain [Unknown]
  - Dysphagia [Unknown]
  - Pneumonia [Unknown]
  - Mobility decreased [Unknown]
  - Aspiration [Unknown]
  - Mental status changes [Unknown]

NARRATIVE: CASE EVENT DATE: 20230101
